FAERS Safety Report 4466305-3 (Version None)
Quarter: 2004Q4

REPORT INFORMATION
  Report Type: 
  Country: None (occurrence: None)
  Receive Date: 20041005
  Receipt Date: 20040818
  Transmission Date: 20050328
  Serious: Yes (Death)
  Sender: FDA-Public Use
  Company Number: PHBS2004JP10876

PATIENT
  Age: 46 Year
  Sex: Female
  Weight: 70 kg

DRUGS (12)
  1. SANDIMMUNE [Suspect]
     Indication: HEPATITIS B
     Dosage: 30 MG/DAY
     Dates: start: 20030708, end: 20030807
  2. ZEFFIX [Concomitant]
     Indication: HEPATITIS B
     Dates: start: 20030701
  3. PREDONINE [Concomitant]
     Indication: HEPATITIS B
     Dosage: 60 MG/DAY
     Route: 065
     Dates: start: 20030707, end: 20030801
  4. PREDONINE [Concomitant]
     Dosage: 20 MG/DAY
     Route: 048
     Dates: start: 20030802, end: 20030825
  5. FRESH FROZEN PLASMA [Concomitant]
     Dates: start: 20030705
  6. NEORAL [Suspect]
     Indication: HEPATITIS B
     Dosage: 60 MG/DAY
     Route: 048
     Dates: start: 20030808, end: 20030825
  7. METHOTREXATE [Suspect]
     Indication: BLADDER CANCER
     Dosage: 45 MG/DAY
     Route: 042
     Dates: start: 20030407, end: 20030604
  8. METHOTREXATE [Suspect]
     Dosage: 20 MG/DAY
     Route: 048
     Dates: start: 20030802, end: 20030825
  9. PINORUBIN [Suspect]
     Indication: BLADDER CANCER
     Dosage: 75 MG/DAY
     Route: 042
     Dates: start: 20030407, end: 20030604
  10. CISPLATIN [Suspect]
     Indication: BLADDER CANCER
     Dosage: 150 MG/DAY
     Route: 042
     Dates: start: 20030408, end: 20030605
  11. SOLU-MEDROL [Suspect]
     Indication: BLADDER CANCER
     Dosage: 250 MG/DAY
     Route: 042
     Dates: start: 20030408, end: 20030605
  12. HEMODIALYSIS [Concomitant]

REACTIONS (6)
  - ANAEMIA [None]
  - COMA HEPATIC [None]
  - CONDITION AGGRAVATED [None]
  - HEPATIC ENCEPHALOPATHY [None]
  - HEPATITIS B [None]
  - LIVER FUNCTION TEST ABNORMAL [None]
